FAERS Safety Report 23238731 (Version 1)
Quarter: 2023Q4

REPORT INFORMATION
  Report Type: Spontaneous
  Country: US (occurrence: US)
  Receive Date: 20231129
  Receipt Date: 20231129
  Transmission Date: 20240110
  Serious: No
  Sender: FDA-Public Use
  Company Number: US-AMGEN-USASP2023210950

PATIENT
  Age: 14 Year
  Sex: Female
  Weight: 61 kg

DRUGS (5)
  1. RITUXIMAB [Suspect]
     Active Substance: RITUXIMAB
     Indication: Thrombotic thrombocytopenic purpura
     Dosage: 375 MILLIGRAM/SQ. METER, QWK
     Route: 065
  2. METHYLPREDNISOLONE [Concomitant]
     Active Substance: METHYLPREDNISOLONE
     Indication: Thrombotic thrombocytopenic purpura
     Dosage: 1000 MILLIGRAM, QD (FOR 3 DAYS)
     Route: 042
  3. PREDNISONE [Concomitant]
     Active Substance: PREDNISONE
     Indication: Thrombotic thrombocytopenic purpura
     Dosage: 1 MILLIGRAM/KILOGRAM, QD
     Route: 065
  4. CAPLACIZUMAB [Concomitant]
     Active Substance: CAPLACIZUMAB
     Indication: Thrombotic thrombocytopenic purpura
     Dosage: 11 MILLIGRAM
     Route: 042
  5. CAPLACIZUMAB [Concomitant]
     Active Substance: CAPLACIZUMAB
     Dosage: 11 MILLIGRAM, QD
     Route: 058

REACTIONS (2)
  - Urinary incontinence [Unknown]
  - Off label use [Unknown]
